FAERS Safety Report 6101352-7 (Version None)
Quarter: 2009Q1

REPORT INFORMATION
  Report Type: 
  Country: None (occurrence: None)
  Receive Date: 20090227
  Receipt Date: 20081114
  Transmission Date: 20090719
  Serious: Yes (Other)
  Sender: FDA-Public Use
  Company Number: 2008S1020698

PATIENT
  Sex: Male

DRUGS (3)
  1. AMNESTEEM [Suspect]
     Indication: ACNE
     Dates: start: 20040401, end: 20040701
  2. ACCUTANE [Suspect]
     Indication: ACNE
     Route: 061
     Dates: start: 20011001, end: 20020201
  3. ACCUTANE [Suspect]
     Indication: ACNE
     Route: 061
     Dates: start: 20020701, end: 20030201

REACTIONS (1)
  - INFLAMMATORY BOWEL DISEASE [None]
